FAERS Safety Report 24732942 (Version 4)
Quarter: 2025Q1

REPORT INFORMATION
  Report Type: Report from Study
  Country: CA (occurrence: CA)
  Receive Date: 20241213
  Receipt Date: 20250125
  Transmission Date: 20250409
  Serious: Yes (Death)
  Sender: ABBVIE
  Company Number: CA-ABBVIE-6045574

PATIENT
  Age: 72 Year
  Sex: Male

DRUGS (1)
  1. VYALEV [Suspect]
     Active Substance: FOSCARBIDOPA\FOSLEVODOPA
     Indication: Product used for unknown indication
     Route: 058
     Dates: start: 20241001

REACTIONS (2)
  - Death [Fatal]
  - Injection site papule [Unknown]

NARRATIVE: CASE EVENT DATE: 20241201
